FAERS Safety Report 8407943-2 (Version None)
Quarter: 2012Q2

REPORT INFORMATION
  Report Type: 
  Country: None (occurrence: None)
  Receive Date: 20120604
  Receipt Date: 20120523
  Transmission Date: 20120825
  Serious: Yes (Hospitalization)
  Sender: FDA-Public Use
  Company Number: US-JNJFOC-20120518969

PATIENT
  Sex: Female
  Weight: 97.52 kg

DRUGS (4)
  1. FLAGYL [Concomitant]
  2. REMICADE [Suspect]
     Indication: COLITIS ULCERATIVE
     Route: 042
     Dates: start: 20120202
  3. METHYLPREDNISOLONE [Concomitant]
     Indication: COLITIS ULCERATIVE
  4. REMICADE [Suspect]
     Route: 042
     Dates: start: 20120215

REACTIONS (13)
  - BRAIN OEDEMA [None]
  - ENDOTRACHEAL INTUBATION [None]
  - ASTHENIA [None]
  - DRUG INEFFECTIVE [None]
  - RENAL FAILURE [None]
  - SYSTEMIC INFLAMMATORY RESPONSE SYNDROME [None]
  - EXERCISE TOLERANCE DECREASED [None]
  - COLITIS ULCERATIVE [None]
  - SEPTIC SHOCK [None]
  - HALLUCINATION [None]
  - CONVULSION [None]
  - POSTERIOR REVERSIBLE ENCEPHALOPATHY SYNDROME [None]
  - PRODUCT QUALITY ISSUE [None]
